FAERS Safety Report 5818574-2 (Version None)
Quarter: 2008Q3

REPORT INFORMATION
  Report Type: 
  Country: None (occurrence: None)
  Receive Date: 20080718
  Receipt Date: 20080711
  Transmission Date: 20090109
  Serious: Yes (Hospitalization, Other)
  Sender: FDA-Public Use
  Company Number: 2008SP011827

PATIENT
  Age: 78 Year
  Sex: Female

DRUGS (4)
  1. PROVENTIL-HFA [Suspect]
     Indication: ASTHMA
     Dosage: PO
     Route: 048
  2. PROVENTIL-HFA [Suspect]
  3. PROVENTIL-HFA [Suspect]
  4. S [Suspect]

REACTIONS (3)
  - DRUG INEFFECTIVE [None]
  - FALL [None]
  - PHARMACEUTICAL PRODUCT COMPLAINT [None]
